FAERS Safety Report 9121511 (Version 1)
Quarter: 2013Q1

REPORT INFORMATION
  Report Type: Spontaneous
  Country: US (occurrence: US)
  Receive Date: 20130103
  Receipt Date: 20130103
  Transmission Date: 20140127
  Serious: Yes (Hospitalization)
  Sender: FDA-Public Use
  Company Number: US-RB-043193-12

PATIENT
  Sex: Female

DRUGS (6)
  1. SUBOXONE FILM [Suspect]
     Indication: PRODUCT USED FOR UNKNOWN INDICATION
     Dosage: SUBOXONE FILM; DOSING DETAILS UNKNOWN
     Route: 060
  2. GENERIC BUPRENORPHINE [Suspect]
     Indication: PRODUCT USED FOR UNKNOWN INDICATION
     Dosage: DOSING DETAILS UNKNOWN
     Route: 060
  3. XANAX [Suspect]
     Indication: PRODUCT USED FOR UNKNOWN INDICATION
     Dosage: DOSING DETAILS UNKNOWN. TAKEN DURING FIRST, SECOND AND THIRD TRIMESTERS.
     Route: 065
  4. ZOFRAN [Concomitant]
     Indication: NAUSEA
     Dosage: DOSING DETAILS UNKNOWN
     Route: 065
     Dates: start: 20120721
  5. NEXIUM [Concomitant]
     Indication: PRODUCT USED FOR UNKNOWN INDICATION
     Dosage: DOSING DETAILS UNKNOWN
     Route: 065
  6. NICOTINE [Concomitant]
     Indication: PRODUCT USED FOR UNKNOWN INDICATION
     Dosage: 20 CIGARETTES PER DAY
     Route: 055

REACTIONS (6)
  - Pre-eclampsia [Unknown]
  - Premature labour [Recovered/Resolved]
  - Premature delivery [Recovered/Resolved]
  - Oligohydramnios [Recovered/Resolved]
  - Drug abuse [Not Recovered/Not Resolved]
  - Exposure during pregnancy [Recovered/Resolved]
